FAERS Safety Report 9055468 (Version 1)
Quarter: 2013Q1

REPORT INFORMATION
  Report Type: Spontaneous
  Country: US (occurrence: US)
  Receive Date: 20130209
  Receipt Date: 20130209
  Transmission Date: 20140127
  Serious: Yes (Hospitalization)
  Sender: FDA-Public Use
  Company Number: US-UCBSA-077714

PATIENT
  Sex: Female
  Weight: 86.18 kg

DRUGS (4)
  1. KEPPRA [Suspect]
     Indication: EPILEPSY
  2. DILANTIN [Suspect]
     Indication: EPILEPSY
     Dosage: 300MG DAILY
  3. DILANTIN [Suspect]
     Indication: EPILEPSY
  4. TRILEPTAL [Suspect]
     Indication: EPILEPSY

REACTIONS (2)
  - Grand mal convulsion [Unknown]
  - Convulsion [Unknown]
